FAERS Safety Report 16083006 (Version 2)
Quarter: 2019Q2

REPORT INFORMATION
  Report Type: Spontaneous
  Country: CO (occurrence: CO)
  Receive Date: 20190318
  Receipt Date: 20190508
  Transmission Date: 20190711
  Serious: Yes (Other)
  Sender: FDA-Public Use
  Company Number: CO-AMGEN-COLSP2019041028

PATIENT
  Age: 56 Year
  Sex: Female

DRUGS (1)
  1. ENBREL [Suspect]
     Active Substance: ETANERCEPT
     Indication: ANKYLOSING SPONDYLITIS
     Dosage: 50 MILLIGRAM, UNK
     Route: 058
     Dates: start: 201805

REACTIONS (3)
  - Accident [Unknown]
  - Rib fracture [Unknown]
  - Clavicle fracture [Unknown]

NARRATIVE: CASE EVENT DATE: 20190204
